FAERS Safety Report 8287074-5 (Version None)
Quarter: 2012Q2

REPORT INFORMATION
  Report Type: 
  Country: None (occurrence: None)
  Receive Date: 20120416
  Receipt Date: 20110929
  Transmission Date: 20120825
  Serious: No
  Sender: FDA-Public Use
  Company Number: US-ALLERGAN-1112974US

PATIENT
  Age: 65 Year
  Sex: Female

DRUGS (2)
  1. ZYMAXID [Suspect]
     Indication: MACULAR DEGENERATION
     Dosage: 1 GTT,
     Route: 047
  2. REFRESH PLUS [Concomitant]
     Indication: PRODUCT USED FOR UNKNOWN INDICATION
     Route: 047

REACTIONS (2)
  - ERYTHEMA [None]
  - EYE IRRITATION [None]
